FAERS Safety Report 4439127-7 (Version None)
Quarter: 2004Q3

REPORT INFORMATION
  Report Type: 
  Country: None (occurrence: None)
  Receive Date: 20040831
  Receipt Date: 20040816
  Transmission Date: 20050211
  Serious: Yes (Death)
  Sender: FDA-Public Use
  Company Number: F01200401036

PATIENT
  Age: 75 Year
  Sex: Male

DRUGS (2)
  1. (OXALIPLATIN) - SOLUTION - 50 MG/M2 [Suspect]
     Indication: RECTAL CANCER
     Dosage: 50 MG/M2, INTRAVENOUS NOS
     Route: 042
     Dates: start: 20030601, end: 20030601
  2. (CAPECITABINE) - TABLET - 825 MG/M2 [Suspect]
     Dosage: 825 MG/M2 (TWICE A DAY) FOR 5 DAYS EACH WEEK FOR 5 WEEKS
     Route: 048
     Dates: start: 20030201, end: 20030601

REACTIONS (37)
  - ABDOMINAL INFECTION [None]
  - ANAEMIA [None]
  - APNOEA [None]
  - BLOOD PRESSURE SYSTOLIC INCREASED [None]
  - CONFUSIONAL STATE [None]
  - DEPRESSED LEVEL OF CONSCIOUSNESS [None]
  - DUODENAL ULCER [None]
  - ESCHERICHIA INFECTION [None]
  - GENERAL PHYSICAL HEALTH DETERIORATION [None]
  - HAEMATOCHEZIA [None]
  - HAEMODIALYSIS [None]
  - HEART RATE INCREASED [None]
  - HYDRONEPHROSIS [None]
  - HYPERGLYCAEMIA [None]
  - HYPOTHERMIA [None]
  - IMPAIRED GASTRIC EMPTYING [None]
  - INTESTINAL DILATATION [None]
  - KLEBSIELLA INFECTION [None]
  - METABOLIC ACIDOSIS [None]
  - PERITONEAL FLUID ANALYSIS ABNORMAL [None]
  - PERITONITIS [None]
  - PLATELET COUNT INCREASED [None]
  - POLYURIA [None]
  - POSTOPERATIVE INFECTION [None]
  - PYELOCALIECTASIS [None]
  - RECTAL PERFORATION [None]
  - REFLUX OESOPHAGITIS [None]
  - RENAL FAILURE ACUTE [None]
  - SALMONELLOSIS [None]
  - SEPTIC SHOCK [None]
  - SERRATIA INFECTION [None]
  - SYSTEMIC CANDIDA [None]
  - SYSTEMIC INFLAMMATORY RESPONSE SYNDROME [None]
  - TACHYPNOEA [None]
  - URETHRAL INJURY [None]
  - URINARY TRACT INFECTION [None]
  - WHITE BLOOD CELL COUNT INCREASED [None]
